FAERS Safety Report 5086713-X (Version None)
Quarter: 2006Q3

REPORT INFORMATION
  Report Type: 
  Country: None (occurrence: None)
  Receive Date: 20060818
  Receipt Date: 20060803
  Transmission Date: 20061208
  Serious: No
  Sender: FDA-Public Use
  Company Number: 2006S1007361

PATIENT
  Age: 11 Year
  Sex: Male
  Weight: 35.8342 kg

DRUGS (2)
  1. CLONIDINE HCL [Suspect]
     Indication: ATTENTION DEFICIT/HYPERACTIVITY DISORDER
     Dosage: 0.1 MG 1X PO
     Route: 048
     Dates: start: 20060801, end: 20060801
  2. METHYLPHENIDATE HCL [Concomitant]

REACTIONS (2)
  - HYPERSENSITIVITY [None]
  - PHARMACEUTICAL PRODUCT COMPLAINT [None]
